FAERS Safety Report 6749993-8 (Version None)
Quarter: 2010Q2

REPORT INFORMATION
  Report Type: 
  Country: None (occurrence: None)
  Receive Date: 20100601
  Receipt Date: 20100526
  Transmission Date: 20101027
  Serious: Yes (Other)
  Sender: FDA-Public Use
  Company Number: MY-B.I. PHARMACEUTICALS,INC./RIDGEFIELD-2010-DE-02915GD

PATIENT

DRUGS (1)
  1. PERSANTINE [Suspect]

REACTIONS (1)
  - CUTANEOUS VASCULITIS [None]
